FAERS Safety Report 10019954 (Version 1)
Quarter: 2014Q1

REPORT INFORMATION
  Report Type: Report from Study
  Country: RO (occurrence: RO)
  Receive Date: 20140318
  Receipt Date: 20140318
  Transmission Date: 20141002
  Serious: Yes (Hospitalization, Other)
  Sender: FDA-Public Use
  Company Number: RO-ASTRAZENECA-2014SE17421

PATIENT
  Age: 29589 Day
  Sex: Female

DRUGS (11)
  1. CRESTOR [Suspect]
     Indication: DYSLIPIDAEMIA
     Route: 048
     Dates: start: 201310, end: 20140115
  2. CORDARONE [Concomitant]
     Indication: HYPERTENSION
     Route: 048
     Dates: start: 20140115
  3. CORDARONE [Concomitant]
     Indication: CARDIAC FAILURE
     Route: 048
     Dates: start: 20140115
  4. CARVEDILOL [Concomitant]
     Indication: HYPERTENSION
     Route: 048
     Dates: start: 20140115
  5. CARVEDILOL [Concomitant]
     Indication: CARDIAC FAILURE
     Route: 048
     Dates: start: 20140115
  6. TRITACE [Concomitant]
     Indication: HYPERTENSION
     Route: 048
     Dates: start: 20140115
  7. TRITACE [Concomitant]
     Indication: CARDIAC FAILURE
     Route: 048
     Dates: start: 20140115
  8. DIUREX [Concomitant]
     Indication: HYPERTENSION
     Route: 048
     Dates: start: 20140115
  9. DIUREX [Concomitant]
     Indication: CARDIAC FAILURE
     Route: 048
     Dates: start: 20140115
  10. FRAXIPARINA [Concomitant]
     Indication: DEEP VEIN THROMBOSIS
     Route: 058
     Dates: start: 20140115
  11. DETRALEX [Concomitant]
     Indication: DEEP VEIN THROMBOSIS
     Route: 048
     Dates: start: 20140128

REACTIONS (7)
  - Urinary tract infection bacterial [Unknown]
  - Urinary tract infection enterococcal [Unknown]
  - Urinary tract infection fungal [Unknown]
  - Sepsis [Unknown]
  - Septic shock [Unknown]
  - Clostridium difficile colitis [Unknown]
  - Deep vein thrombosis [Unknown]
